FAERS Safety Report 11586585 (Version 3)
Quarter: 2015Q4

REPORT INFORMATION
  Report Type: Spontaneous
  Country: US (occurrence: US)
  Receive Date: 20151001
  Receipt Date: 20151015
  Transmission Date: 20160304
  Serious: Yes (Other)
  Sender: FDA-Public Use
  Company Number: CHPA2015US011409

PATIENT
  Age: 70 Year
  Sex: Female

DRUGS (7)
  1. EXCEDRIN EXTRA STRENGTH [Suspect]
     Active Substance: ACETAMINOPHEN\ASPIRIN\CAFFEINE
     Indication: ARTHRITIS
     Dosage: UNK, QD
     Route: 048
     Dates: start: 201503
  2. EXCEDRIN EXTRA STRENGTH [Suspect]
     Active Substance: ACETAMINOPHEN\ASPIRIN\CAFFEINE
     Indication: HEADACHE
     Dosage: ABOUT 5 TIMES IN A YEAR
     Route: 048
  3. ADVIL [Concomitant]
     Active Substance: IBUPROFEN
     Indication: TOOTHACHE
     Route: 048
  4. ALEVE [Concomitant]
     Active Substance: NAPROXEN SODIUM
     Indication: MYALGIA
     Route: 065
  5. ALEVE [Concomitant]
     Active Substance: NAPROXEN SODIUM
     Indication: TOOTHACHE
  6. EXCEDRIN EXTRA STRENGTH [Suspect]
     Active Substance: ACETAMINOPHEN\ASPIRIN\CAFFEINE
     Indication: TOOTHACHE
     Dosage: 1 TO 2 DF, UNK
     Route: 048
     Dates: start: 20150112
  7. TYLENOL [Concomitant]
     Active Substance: ACETAMINOPHEN
     Indication: PRODUCT USED FOR UNKNOWN INDICATION
     Dosage: UNK
     Route: 065

REACTIONS (5)
  - Tooth fracture [Recovering/Resolving]
  - Impaired healing [Unknown]
  - Headache [Unknown]
  - Incorrect dose administered [Unknown]
  - Tooth injury [Recovering/Resolving]

NARRATIVE: CASE EVENT DATE: 201501
